FAERS Safety Report 15507994 (Version 1)
Quarter: 2018Q4

REPORT INFORMATION
  Report Type: Spontaneous
  Country: US (occurrence: US)
  Receive Date: 20181016
  Receipt Date: 20181016
  Transmission Date: 20190205
  Serious: No
  Sender: FDA-Public Use
  Company Number: US-ROMARKLABS-2018-US-000046

PATIENT
  Age: 26 Year
  Sex: Male

DRUGS (1)
  1. ALINIA [Suspect]
     Active Substance: NITAZOXANIDE
     Indication: PRODUCT USED FOR UNKNOWN INDICATION
     Dosage: 1 TABLET TWICE DAILY
     Route: 048
     Dates: start: 20170801

REACTIONS (5)
  - Diarrhoea [Unknown]
  - Nausea [Unknown]
  - Tremor [Unknown]
  - Asthenia [Unknown]
  - Pallor [Unknown]

NARRATIVE: CASE EVENT DATE: 20170808
